FAERS Safety Report 5804998-6 (Version None)
Quarter: 2008Q3

REPORT INFORMATION
  Report Type: 
  Country: None (occurrence: None)
  Receive Date: 20080707
  Receipt Date: 20070726
  Transmission Date: 20090109
  Serious: Yes (Hospitalization)
  Sender: FDA-Public Use
  Company Number: 508939

PATIENT
  Age: 30 Year
  Sex: Female

DRUGS (1)
  1. CELLCEPT [Suspect]
     Indication: SYSTEMIC LUPUS ERYTHEMATOSUS
     Dosage: 4.25 GRAM DAILY

REACTIONS (3)
  - FLUID RETENTION [None]
  - INCORRECT DOSE ADMINISTERED [None]
  - LEUKOCYTOSIS [None]
